FAERS Safety Report 8625455-8 (Version None)
Quarter: 2012Q3

REPORT INFORMATION
  Report Type: 
  Country: None (occurrence: None)
  Receive Date: 20120827
  Receipt Date: 20120827
  Transmission Date: 20120928
  Serious: Yes (Other)
  Sender: FDA-Public Use
  Company Number: US-ABBOTT-12P-163-0969554-00

PATIENT
  Age: 62 Year
  Sex: Female

DRUGS (10)
  1. LOSARTAN POTASSIUM [Concomitant]
     Indication: PRODUCT USED FOR UNKNOWN INDICATION
  2. POTASSIUM [Concomitant]
     Indication: PRODUCT USED FOR UNKNOWN INDICATION
  3. ZETIA [Suspect]
     Indication: PRODUCT USED FOR UNKNOWN INDICATION
     Dates: start: 20120713
  4. LOTREL [Suspect]
     Indication: PRODUCT USED FOR UNKNOWN INDICATION
  5. NOPALEA [Concomitant]
     Indication: INFLAMMATION
     Dates: start: 20120807
  6. AMLODIPINE [Concomitant]
     Indication: PRODUCT USED FOR UNKNOWN INDICATION
  7. HUMIRA [Suspect]
     Indication: PSORIASIS
  8. LIPITOR [Suspect]
     Indication: PRODUCT USED FOR UNKNOWN INDICATION
     Dates: end: 20120701
  9. CARVEDILOL [Concomitant]
     Indication: PRODUCT USED FOR UNKNOWN INDICATION
  10. CELEXA [Concomitant]
     Indication: DEPRESSION

REACTIONS (7)
  - DRY EYE [None]
  - ANGLE CLOSURE GLAUCOMA [None]
  - ALLERGIC OEDEMA [None]
  - PSORIASIS [None]
  - MUSCULOSKELETAL DISCOMFORT [None]
  - DRUG TOLERANCE INCREASED [None]
  - URTICARIA [None]
